FAERS Safety Report 13017879 (Version 1)
Quarter: 2016Q4

REPORT INFORMATION
  Report Type: Spontaneous
  Country: DE (occurrence: DE)
  Receive Date: 20161212
  Receipt Date: 20161212
  Transmission Date: 20170207
  Serious: Yes (Hospitalization, Other)
  Sender: FDA-Public Use
  Company Number: DE-GLAXOSMITHKLINE-DE2016GSK182366

PATIENT
  Age: 64 Year
  Sex: Female
  Weight: 54 kg

DRUGS (20)
  1. ACICLOVIR [Suspect]
     Active Substance: ACYCLOVIR
     Indication: ENCEPHALITIS
     Dosage: 800 MG, BID
     Route: 048
     Dates: start: 20161110, end: 20161115
  2. VITARENAL [Concomitant]
     Dosage: 1 DF, QD
     Route: 048
  3. CALCIUMCARBONAT [Concomitant]
     Dosage: 500 MG, BID
     Route: 048
  4. AREDIA [Concomitant]
     Active Substance: PAMIDRONATE DISODIUM
     Route: 042
  5. DEXA [Concomitant]
     Active Substance: DEXAMETHASONE
     Dosage: 20 MG, Z
     Route: 042
     Dates: start: 20160608, end: 20160709
  6. LERCANIDIPIN [Concomitant]
     Active Substance: LERCANIDIPINE
     Dosage: 10 MG, BID
     Route: 048
  7. DARZALEX [Suspect]
     Active Substance: DARATUMUMAB
     Indication: PLASMA CELL MYELOMA
     Dosage: 16 MG/KG, Z
     Route: 042
     Dates: end: 20161111
  8. DECOSTRIOL [Concomitant]
     Active Substance: CALCITRIOL
     Dosage: 3 UG, WE
     Route: 048
  9. DELIX [Concomitant]
     Active Substance: RAMIPRIL
     Dosage: 5 MG, BID
     Route: 048
  10. MOXONIDIN [Concomitant]
     Active Substance: MOXONIDINE
     Dosage: 0.3 MG, BID
     Route: 048
  11. COTRIM FORTE [Concomitant]
     Active Substance: SULFAMETHOXAZOLE\TRIMETHOPRIM
     Dosage: 1440 MG, WE
  12. BORTEZOMIB [Concomitant]
     Active Substance: BORTEZOMIB
     Dosage: 1.3 MG/M2, Z
     Route: 042
     Dates: start: 20160608, end: 20160708
  13. L-THYROXIN [Concomitant]
     Active Substance: LEVOTHYROXINE SODIUM
     Indication: HYPOTHYROIDISM
     Dosage: 50 UG, QD
     Route: 048
     Dates: start: 20160603
  14. MAGNESIUM [Concomitant]
     Active Substance: MAGNESIUM
     Dosage: 1 DF, BID
     Route: 048
  15. DOXAZOSIN [Concomitant]
     Active Substance: DOXAZOSIN\DOXAZOSIN MESYLATE
     Dosage: 8 MG, QD
     Route: 048
  16. DEKRISTOL [Concomitant]
     Active Substance: CHOLECALCIFEROL
     Dosage: 20000 IU, WE
     Route: 048
  17. METOHEXAL [Concomitant]
     Active Substance: METOPROLOL SUCCINATE
     Dosage: 47.5 MG, QD
     Route: 048
  18. PANTOZOL [Concomitant]
     Active Substance: PANTOPRAZOLE SODIUM
     Dosage: 40 MG, QD
     Route: 048
  19. TOREM [Concomitant]
     Active Substance: TORSEMIDE
     Dosage: 200 MG, QD
     Route: 048
  20. NEPRESOL [Concomitant]
     Active Substance: DIHYDRALAZINE SULFATE
     Dosage: 25 MG, PRN
     Route: 048

REACTIONS (4)
  - Pyrexia [Recovering/Resolving]
  - Infection [Recovering/Resolving]
  - Personality change [Recovering/Resolving]
  - Acute psychosis [Recovering/Resolving]

NARRATIVE: CASE EVENT DATE: 20161112
